FAERS Safety Report 10444183 (Version 3)
Quarter: 2014Q3

REPORT INFORMATION
  Report Type: Not Available
  Country: GB (occurrence: GB)
  Receive Date: 20140910
  Receipt Date: 20140922
  Transmission Date: 20150326
  Serious: Yes (Other)
  Sender: FDA-Public Use
  Company Number: GB-BEH-2014044769

PATIENT
  Age: 75 Year
  Sex: Male
  Weight: 114 kg

DRUGS (2)
  1. PRIVIGEN [Suspect]
     Active Substance: HUMAN IMMUNOGLOBULIN G
     Indication: SEPSIS
     Dosage: 1 / 1 HOUR
     Route: 042
     Dates: start: 20140718, end: 20140718
  2. PRIVIGEN [Suspect]
     Active Substance: HUMAN IMMUNOGLOBULIN G
     Indication: NEUTROPENIA
     Dosage: 1 / 1 HOUR
     Route: 042
     Dates: start: 20140718, end: 20140718

REACTIONS (8)
  - Tachypnoea [Recovered/Resolved]
  - Dyspnoea [Recovered/Resolved]
  - Peripheral coldness [Recovered/Resolved]
  - Dyspnoea [Recovered/Resolved]
  - General physical health deterioration [Recovered/Resolved]
  - Tachycardia [Recovered/Resolved]
  - Oxygen saturation decreased [Recovered/Resolved]
  - Hypotension [Recovered/Resolved]

NARRATIVE: CASE EVENT DATE: 20140718
